FAERS Safety Report 13074542 (Version 1)
Quarter: 2016Q4

REPORT INFORMATION
  Report Type: Spontaneous
  Country: US (occurrence: US)
  Receive Date: 20161230
  Receipt Date: 20161230
  Transmission Date: 20170207
  Serious: Yes (Death, Hospitalization)
  Sender: FDA-Public Use
  Company Number: US-ASTRAZENECA-2016SF37412

PATIENT
  Age: 37 Year
  Sex: Female

DRUGS (11)
  1. OXCARBAZEPINE. [Suspect]
     Active Substance: OXCARBAZEPINE
  2. DIPHENHYDRAMINE. [Suspect]
     Active Substance: DIPHENHYDRAMINE
  3. BENZTROPINE [Suspect]
     Active Substance: BENZTROPINE
  4. ZOLPIDEM [Suspect]
     Active Substance: ZOLPIDEM\ZOLPIDEM TARTRATE
  5. LITHIUM. [Suspect]
     Active Substance: LITHIUM
  6. DIAZEPAM. [Suspect]
     Active Substance: DIAZEPAM
  7. BUPROPION. [Suspect]
     Active Substance: BUPROPION
  8. LURASIDONE [Suspect]
     Active Substance: LURASIDONE
  9. GABAPENTIN. [Suspect]
     Active Substance: GABAPENTIN
  10. DULOXETINE. [Suspect]
     Active Substance: DULOXETINE
  11. QUETIAPINE. [Suspect]
     Active Substance: QUETIAPINE

REACTIONS (2)
  - Toxicity to various agents [Fatal]
  - Completed suicide [Fatal]
